FAERS Safety Report 11924301 (Version 1)
Quarter: 2016Q1

REPORT INFORMATION
  Report Type: Spontaneous
  Country: US (occurrence: US)
  Receive Date: 20160118
  Receipt Date: 20160118
  Transmission Date: 20160526
  Serious: No
  Sender: FDA-Public Use
  Company Number: US-HORIZON-PEN-0006-2016

PATIENT
  Sex: Male

DRUGS (2)
  1. FLECTOR [Concomitant]
     Active Substance: DICLOFENAC EPOLAMINE
  2. PENNSAID [Suspect]
     Active Substance: DICLOFENAC SODIUM
     Indication: BACK PAIN
     Dosage: 1-2 PUMPS ONCE DAILY
     Route: 061

REACTIONS (1)
  - Off label use [Recovered/Resolved]
